FAERS Safety Report 21633518 (Version 1)
Quarter: 2022Q4

REPORT INFORMATION
  Report Type: Spontaneous
  Country: CN (occurrence: CN)
  Receive Date: 20221123
  Receipt Date: 20221123
  Transmission Date: 20230112
  Serious: Yes (Death, Other)
  Sender: FDA-Public Use
  Company Number: CN-AMGEN-CHNSP2022199024

PATIENT

DRUGS (3)
  1. FILGRASTIM [Suspect]
     Active Substance: FILGRASTIM
     Indication: Prophylaxis
     Dosage: 200 MICROGRAM/SQ. METER, PER DAY
     Route: 058
  2. AZACITIDINE [Concomitant]
     Active Substance: AZACITIDINE
     Dosage: 75 MILLIGRAM/SQ. METER, PER DAY, ON DAYS 1-7
     Route: 058
  3. CYTARABINE [Concomitant]
     Active Substance: CYTARABINE
     Dosage: 10 MILLIGRAM/SQ. METER, Q12H, ON DAYS 4-17
     Route: 058

REACTIONS (16)
  - Death [Fatal]
  - Infection [Unknown]
  - Haemorrhage [Unknown]
  - Hypokalaemia [Unknown]
  - Neutropenia [Unknown]
  - Arrhythmia [Unknown]
  - Aspartate aminotransferase increased [Unknown]
  - Alanine aminotransferase increased [Unknown]
  - Acute myeloid leukaemia recurrent [Unknown]
  - Thrombocytopenia [Unknown]
  - Diarrhoea [Unknown]
  - Vomiting [Unknown]
  - Fatigue [Unknown]
  - Pyrexia [Unknown]
  - Nausea [Unknown]
  - Constipation [Unknown]
